FAERS Safety Report 8099077-4 (Version None)
Quarter: 2012Q1

REPORT INFORMATION
  Report Type: 
  Country: None (occurrence: None)
  Receive Date: 20120129
  Receipt Date: 20111021
  Transmission Date: 20120608
  Serious: No
  Sender: FDA-Public Use
  Company Number: US-ABBOTT-11P-163-0867993-00

PATIENT
  Sex: Female
  Weight: 71.732 kg

DRUGS (1)
  1. HUMIRA [Suspect]
     Indication: RHEUMATOID ARTHRITIS
     Dosage: SKIPPED ONE DOSE ON 14 OCT
     Dates: start: 20110101

REACTIONS (3)
  - NASOPHARYNGITIS [None]
  - SNEEZING [None]
  - RHINORRHOEA [None]
